FAERS Safety Report 10224669 (Version 4)
Quarter: 2015Q2

REPORT INFORMATION
  Report Type: Report from Study
  Country: US (occurrence: US)
  Receive Date: 20140609
  Receipt Date: 20150410
  Transmission Date: 20150821
  Serious: No
  Sender: FDA-Public Use
  Company Number: US-SA-2014SA054025

PATIENT
  Age: 75 Year
  Sex: Male

DRUGS (6)
  1. AUBAGIO [Suspect]
     Active Substance: TERIFLUNOMIDE
     Indication: MULTIPLE SCLEROSIS
     Route: 048
     Dates: start: 20140408, end: 20140524
  2. METHOCARBAMOL. [Concomitant]
     Active Substance: METHOCARBAMOL
  3. HYDROMORPHONE [Concomitant]
     Active Substance: HYDROMORPHONE
     Indication: PAIN
  4. AUBAGIO [Suspect]
     Active Substance: TERIFLUNOMIDE
     Indication: MULTIPLE SCLEROSIS
     Route: 048
     Dates: start: 20140401
  5. SODIUM BICARBONATE. [Concomitant]
     Active Substance: SODIUM BICARBONATE
  6. OXYCODONE [Concomitant]
     Active Substance: OXYCODONE
     Indication: PAIN

REACTIONS (7)
  - Gait disturbance [Unknown]
  - Gait disturbance [Unknown]
  - Nausea [Unknown]
  - Decreased appetite [Unknown]
  - Weight decreased [Unknown]
  - Dizziness [Unknown]
  - Back pain [Recovering/Resolving]

NARRATIVE: CASE EVENT DATE: 2014
